FAERS Safety Report 9773479 (Version 3)
Quarter: 2014Q1

REPORT INFORMATION
  Report Type: Spontaneous
  Country: US (occurrence: US)
  Receive Date: 20131219
  Receipt Date: 20140307
  Transmission Date: 20141002
  Serious: Yes (Hospitalization)
  Sender: FDA-Public Use
  Company Number: US-TARO-2013P1022019

PATIENT
  Age: 73 Year
  Sex: Female
  Weight: 42.46 kg

DRUGS (6)
  1. CLORAZEPATE DIPOTASSIUM TABLETS USP 7.5 MG [Suspect]
     Route: 048
     Dates: start: 20131126
  2. CLORAZEPATE DIPOTASSIUM TABLETS USP 7.5 MG [Suspect]
     Route: 048
     Dates: start: 20131126, end: 201312
  3. PEPCID [Concomitant]
  4. CALTRATE [Concomitant]
  5. IMODIUM [Concomitant]
  6. ACETAMINOPHEN [Concomitant]
     Route: 048

REACTIONS (11)
  - Gastroenteritis viral [Recovered/Resolved]
  - Dehydration [Recovered/Resolved]
  - Hypokalaemia [Recovered/Resolved]
  - Weight decreased [Recovered/Resolved]
  - Dyspepsia [Recovered/Resolved]
  - Back pain [Not Recovered/Not Resolved]
  - Pancreatic disorder [Unknown]
  - Hyponatraemia [Not Recovered/Not Resolved]
  - Dysuria [Unknown]
  - Chromaturia [Unknown]
  - Dizziness [Unknown]
